FAERS Safety Report 10219056 (Version 2)
Quarter: 2014Q2

REPORT INFORMATION
  Report Type: Report from Study
  Country: US (occurrence: DE)
  Receive Date: 20140605
  Receipt Date: 20140612
  Transmission Date: 20141212
  Serious: Yes (Other)
  Sender: FDA-Public Use
  Company Number: DE-FRI-1000067868

PATIENT
  Age: 76 Year
  Sex: Male
  Weight: 87 kg

DRUGS (1)
  1. ROFLUMILAST [Suspect]
     Indication: CHRONIC OBSTRUCTIVE PULMONARY DISEASE
     Dosage: 500 MCG
     Route: 048
     Dates: start: 20140506, end: 20140525

REACTIONS (1)
  - Cardiac fibrillation [Recovered/Resolved]
